FAERS Safety Report 12519096 (Version 3)
Quarter: 2016Q4

REPORT INFORMATION
  Report Type: Report from Study
  Country: BR (occurrence: BR)
  Receive Date: 20160630
  Receipt Date: 20161012
  Transmission Date: 20170207
  Serious: Yes (Hospitalization, Other)
  Sender: FDA-Public Use
  Company Number: PHHY2016BR062731

PATIENT
  Sex: Female
  Weight: 53 kg

DRUGS (4)
  1. SANDOSTATIN LAR DEPOT [Suspect]
     Active Substance: OCTREOTIDE ACETATE
     Indication: NEUROENDOCRINE TUMOUR
     Dosage: 30 MG, QMO, ONCE A MONTH/ MONTHLY
     Route: 030
     Dates: start: 201203
  2. OMEPRAZOLE. [Concomitant]
     Active Substance: OMEPRAZOLE
     Indication: PRODUCT USED FOR UNKNOWN INDICATION
     Dosage: 1 DF, QD
     Route: 048
  3. SANDOSTATIN LAR DEPOT [Suspect]
     Active Substance: OCTREOTIDE ACETATE
     Dosage: 40 MG, 2 VIALS OF 20 MG
     Route: 030
  4. AFINITOR [Concomitant]
     Active Substance: EVEROLIMUS
     Indication: NEUROENDOCRINE TUMOUR
     Dosage: 10 DF, QD
     Route: 065
     Dates: start: 201608

REACTIONS (14)
  - Swelling [Recovering/Resolving]
  - Weight decreased [Recovering/Resolving]
  - Feeling abnormal [Recovering/Resolving]
  - Blood pressure decreased [Unknown]
  - Anaemia [Unknown]
  - Asthenia [Unknown]
  - Fear [Unknown]
  - Blood chromogranin A increased [Unknown]
  - Abdominal pain [Unknown]
  - Abdominal distension [Unknown]
  - Diet refusal [Unknown]
  - Underweight [Unknown]
  - Feeding disorder [Recovering/Resolving]
  - Pain [Recovering/Resolving]
